FAERS Safety Report 23288259 (Version 2)
Quarter: 2024Q1

REPORT INFORMATION
  Report Type: Report from Study
  Country: US (occurrence: US)
  Receive Date: 20231212
  Receipt Date: 20240213
  Transmission Date: 20240410
  Serious: Yes (Hospitalization, Other)
  Sender: FDA-Public Use
  Company Number: US-TAIHOP-2023-003980

PATIENT
  Age: 52 Year
  Sex: Male
  Weight: 55.88 kg

DRUGS (2)
  1. LONSURF [Suspect]
     Active Substance: TIPIRACIL HYDROCHLORIDE\TRIFLURIDINE
     Indication: Rectal cancer
     Dosage: CYCLE AND FORM STRENGTH UNKNOWN
     Route: 048
     Dates: start: 20230417
  2. FRUZAQLA [Suspect]
     Active Substance: FRUQUINTINIB
     Indication: Rectal cancer
     Dosage: START DATE: 04-JAN-2024
     Route: 048

REACTIONS (12)
  - Neoplasm [Unknown]
  - Stent malfunction [Unknown]
  - Lung disorder [Unknown]
  - Muscle spasms [Unknown]
  - Constipation [Unknown]
  - Bowel movement irregularity [Unknown]
  - Pyrexia [Unknown]
  - White blood cell count decreased [Unknown]
  - Dyspnoea exertional [Unknown]
  - Fatigue [Not Recovered/Not Resolved]
  - Decreased appetite [Unknown]
  - Memory impairment [Unknown]

NARRATIVE: CASE EVENT DATE: 20231001
